FAERS Safety Report 6456836-9 (Version None)
Quarter: 2009Q4

REPORT INFORMATION
  Report Type: 
  Country: None (occurrence: None)
  Receive Date: 20091125
  Receipt Date: 20091117
  Transmission Date: 20100525
  Serious: Yes (Other)
  Sender: FDA-Public Use
  Company Number: JP-NOVOPROD-300916

PATIENT
  Sex: Female

DRUGS (1)
  1. NORDITROPIN NORDIFLEX [Suspect]
     Indication: SMALL FOR DATES BABY
     Dosage: UNKNOWN/SC
     Route: 058
     Dates: start: 20081001

REACTIONS (4)
  - DEAFNESS BILATERAL [None]
  - DISEASE COMPLICATION [None]
  - OSSICLE DISORDER [None]
  - OTITIS MEDIA [None]
